FAERS Safety Report 18070405 (Version 1)
Quarter: 2020Q3

REPORT INFORMATION
  Report Type: Spontaneous
  Country: US (occurrence: US)
  Receive Date: 20200727
  Receipt Date: 20200727
  Transmission Date: 20201103
  Serious: No
  Sender: FDA-Public Use
  Company Number: US-ALKEM LABORATORIES LIMITED-US-ALKEM-2020-00120

PATIENT
  Age: 80 Year
  Sex: Male

DRUGS (15)
  1. ASPIRIN. [Concomitant]
     Active Substance: ASPIRIN
     Indication: PRODUCT USED FOR UNKNOWN INDICATION
     Dosage: 1 DOSAGE FORM
     Route: 048
  2. VITAMIN B12 [Concomitant]
     Active Substance: CYANOCOBALAMIN
     Indication: SUPPLEMENTATION THERAPY
     Dosage: 1 DOSAGE FORM
     Route: 048
  3. CALCIUM GLUCONATE. [Concomitant]
     Active Substance: CALCIUM GLUCONATE
     Indication: SUPPLEMENTATION THERAPY
     Dosage: 2 DOSAGE FORM
     Route: 048
  4. MARINOL [Suspect]
     Active Substance: DRONABINOL
     Indication: PRODUCT USED FOR UNKNOWN INDICATION
     Dosage: 2.5 MILLIGRAM
     Route: 048
  5. ISOVUE [Concomitant]
     Active Substance: IOPAMIDOL
     Indication: PRODUCT USED FOR UNKNOWN INDICATION
     Dosage: UNKNOWN
     Route: 065
  6. AMOXCILLIN?CLAVULANATE POTASSIUM [Concomitant]
     Indication: PRODUCT USED FOR UNKNOWN INDICATION
     Dosage: 1 DOSAGE FORM
     Route: 048
  7. MULTIVITAMINS [Concomitant]
     Active Substance: VITAMINS
     Indication: SUPPLEMENTATION THERAPY
     Dosage: 1 DOSAGE FORM
     Route: 048
  8. CARBIDOPA? LEVODOPA [Concomitant]
     Indication: PARKINSON^S DISEASE
     Dosage: 15 DOSAGE FORM
     Route: 048
  9. VISINE A.C. [Concomitant]
     Active Substance: TETRAHYDROZOLINE HYDROCHLORIDE\ZINC SULFATE
     Indication: PRODUCT USED FOR UNKNOWN INDICATION
     Dosage: 1 GTT IN BOTH EYES
  10. DUOPA [Suspect]
     Active Substance: CARBIDOPA\LEVODOPA
     Indication: PARKINSON^S DISEASE
     Dosage: 100 MILLIGRAM
     Dates: start: 20190618
  11. TAMSULOSIN [Concomitant]
     Active Substance: TAMSULOSIN
     Indication: PRODUCT USED FOR UNKNOWN INDICATION
     Dosage: UNKNOWN
     Route: 065
  12. VITAMIN D3 [Concomitant]
     Active Substance: CHOLECALCIFEROL
     Indication: SUPPLEMENTATION THERAPY
     Dosage: 100 MCG
     Route: 048
  13. CARBIDOPA/ LEVODOPA ER [Concomitant]
     Indication: PARKINSON^S DISEASE
     Dosage: 2 DOSAGE FORM
     Route: 048
  14. MIRTAZAPINE. [Concomitant]
     Active Substance: MIRTAZAPINE
     Indication: PRODUCT USED FOR UNKNOWN INDICATION
     Dosage: 1 DOSAGE FORM
     Route: 048
  15. FOLBIC [Concomitant]
     Active Substance: CYANOCOBALAMIN\FOLIC ACID\PYRIDOXINE
     Indication: SUPPLEMENTATION THERAPY
     Dosage: 1 DOSAGE FORM
     Route: 048

REACTIONS (1)
  - Anxiety [Unknown]

NARRATIVE: CASE EVENT DATE: 20200111
